FAERS Safety Report 5159244-6 (Version None)
Quarter: 2006Q4

REPORT INFORMATION
  Report Type: 
  Country: None (occurrence: None)
  Receive Date: 20061120
  Receipt Date: 20061106
  Transmission Date: 20070319
  Serious: Yes (Hospitalization)
  Sender: FDA-Public Use
  Company Number: 2006P1000521

PATIENT
  Age: 61 Year
  Sex: Male

DRUGS (1)
  1. NICARDIPINE HYDROCHLORIDE [Suspect]
     Indication: HYPERTENSION
     Dosage: IV
     Route: 042
     Dates: start: 20060201

REACTIONS (9)
  - AORTIC DISSECTION [None]
  - CEREBRAL INFARCTION [None]
  - CEREBRAL ISCHAEMIA [None]
  - DEPRESSED LEVEL OF CONSCIOUSNESS [None]
  - DIALYSIS [None]
  - HYPOXIA [None]
  - MOVEMENT DISORDER [None]
  - RENAL IMPAIRMENT [None]
  - RESTLESSNESS [None]
